FAERS Safety Report 21326819 (Version 1)
Quarter: 2022Q3

REPORT INFORMATION
  Report Type: Spontaneous
  Country: US (occurrence: US)
  Receive Date: 20220913
  Receipt Date: 20220913
  Transmission Date: 20221027
  Serious: Yes (Other)
  Sender: FDA-Public Use
  Company Number: US-SA-2022SA368983

PATIENT
  Age: 18 Year
  Sex: Male

DRUGS (7)
  1. DIPHENHYDRAMINE [Suspect]
     Active Substance: DIPHENHYDRAMINE
     Dosage: UNK
     Route: 030
  2. CHLORPROMAZINE [Suspect]
     Active Substance: CHLORPROMAZINE
     Dosage: UNK UNK, PRN
     Route: 030
  3. LORAZEPAM [Suspect]
     Active Substance: LORAZEPAM
     Dosage: UNK UNK, PRN
     Route: 030
  4. LORAZEPAM [Suspect]
     Active Substance: LORAZEPAM
     Dosage: UNK, PRN
     Route: 030
  5. OLANZAPINE [Suspect]
     Active Substance: OLANZAPINE
     Dosage: 5 MG, BID
     Route: 048
  6. VALPROIC ACID [Concomitant]
     Active Substance: VALPROIC ACID
     Dosage: 750 MG, BID
     Route: 048
  7. HALOPERIDOL [Concomitant]
     Active Substance: HALOPERIDOL
     Dosage: UNK UNK, PRN
     Route: 030

REACTIONS (3)
  - Delirium [Unknown]
  - Confusional state [Unknown]
  - Tachycardia [Unknown]
